FAERS Safety Report 25200454 (Version 1)
Quarter: 2025Q2

REPORT INFORMATION
  Report Type: Spontaneous
  Country: CA (occurrence: CA)
  Receive Date: 20250415
  Receipt Date: 20250415
  Transmission Date: 20250716
  Serious: Yes (Death)
  Sender: BRACCO
  Company Number: CA-BRACCO-2025CA02390

PATIENT
  Age: 77 Year
  Sex: Male

DRUGS (1)
  1. ISOVUE 370 [Suspect]
     Active Substance: IOPAMIDOL
     Indication: Computerised tomogram
     Route: 042
     Dates: start: 20241125, end: 20241125

REACTIONS (2)
  - Malaise [Fatal]
  - Urinary incontinence [Fatal]

NARRATIVE: CASE EVENT DATE: 20241125
